FAERS Safety Report 18613279 (Version 1)
Quarter: 2020Q4

REPORT INFORMATION
  Report Type: Spontaneous
  Country: US (occurrence: US)
  Receive Date: 20201214
  Receipt Date: 20201214
  Transmission Date: 20210114
  Serious: No
  Sender: FDA-Public Use
  Company Number: US-NOVOPROD-702384

PATIENT
  Age: 83 Year
  Sex: Male

DRUGS (1)
  1. LEVEMIR [Suspect]
     Active Substance: INSULIN DETEMIR
     Indication: TYPE 2 DIABETES MELLITUS
     Dosage: 28 IU, QD
     Route: 058
     Dates: start: 201606

REACTIONS (7)
  - Blood glucose increased [Not Recovered/Not Resolved]
  - Glomerular filtration rate decreased [Unknown]
  - Weight increased [Unknown]
  - Glycosylated haemoglobin increased [Not Recovered/Not Resolved]
  - Micturition frequency decreased [Unknown]
  - Blood glucose decreased [Recovered/Resolved]
  - Injection site injury [Recovered/Resolved]

NARRATIVE: CASE EVENT DATE: 20190317
